FAERS Safety Report 4660953-3 (Version None)
Quarter: 2005Q2

REPORT INFORMATION
  Report Type: 
  Country: None (occurrence: None)
  Receive Date: 20050511
  Receipt Date: 20050502
  Transmission Date: 20051028
  Serious: Yes (Hospitalization, Other)
  Sender: FDA-Public Use
  Company Number: 2005069197

PATIENT
  Age: 81 Year
  Sex: Female
  Weight: 47.6277 kg

DRUGS (3)
  1. CELEBREX [Suspect]
     Indication: ARTHRITIS
     Dosage: 300 MG (100 MG, 3 IN 1 D),
     Dates: end: 20050101
  2. ALENDRONATE SODIUM [Concomitant]
  3. ASPIRIN [Concomitant]

REACTIONS (14)
  - BLISTER [None]
  - BLOOD PRESSURE INCREASED [None]
  - BODY HEIGHT DECREASED [None]
  - DIZZINESS [None]
  - DRUG EFFECT DECREASED [None]
  - FEELING ABNORMAL [None]
  - HYPERKERATOSIS [None]
  - INFLUENZA [None]
  - OEDEMA PERIPHERAL [None]
  - SPINAL FRACTURE [None]
  - STOMACH DISCOMFORT [None]
  - THROMBOSIS [None]
  - TRANSIENT ISCHAEMIC ATTACK [None]
  - TREMOR [None]
